FAERS Safety Report 10639040 (Version 4)
Quarter: 2019Q4

REPORT INFORMATION
  Report Type: Spontaneous
  Country: US (occurrence: US)
  Receive Date: 20141208
  Receipt Date: 20191019
  Transmission Date: 20200122
  Serious: Yes (Other)
  Sender: FDA-Public Use
  Company Number: US-TEVA-527373USA

PATIENT
  Age: 38 Year
  Sex: Female

DRUGS (1)
  1. PARAGARD T 380A [Suspect]
     Active Substance: COPPER
     Indication: CONTRACEPTION
     Route: 015
     Dates: start: 201103, end: 20150608

REACTIONS (7)
  - Maternal exposure during pregnancy [Unknown]
  - Embedded device [Unknown]
  - Premature separation of placenta [Unknown]
  - Haemorrhage [Unknown]
  - Normal newborn [Unknown]
  - Drug ineffective [Not Recovered/Not Resolved]
  - Pregnancy with contraceptive device [Unknown]

NARRATIVE: CASE EVENT DATE: 20150608
